FAERS Safety Report 24804578 (Version 2)
Quarter: 2025Q1

REPORT INFORMATION
  Report Type: Spontaneous
  Country: US (occurrence: US)
  Receive Date: 20250103
  Receipt Date: 20250131
  Transmission Date: 20250409
  Serious: No
  Sender: BRISTOL-MYERS SQUIBB COMPANY
  Company Number: US-BRISTOL-MYERS SQUIBB COMPANY-2025-001094

PATIENT
  Age: 57 Year
  Sex: Female

DRUGS (2)
  1. POMALYST [Suspect]
     Active Substance: POMALIDOMIDE
     Indication: Plasma cell myeloma
     Route: 048
     Dates: start: 202411
  2. POMALYST [Suspect]
     Active Substance: POMALIDOMIDE
     Route: 048
     Dates: start: 20241120

REACTIONS (5)
  - Nasopharyngitis [Unknown]
  - Upper respiratory tract congestion [Unknown]
  - Nasal congestion [Unknown]
  - Rash macular [Unknown]
  - Influenza [Unknown]

NARRATIVE: CASE EVENT DATE: 20241201
